FAERS Safety Report 9728547 (Version 1)
Quarter: 2013Q4

REPORT INFORMATION
  Report Type: Spontaneous
  Country: US (occurrence: US)
  Receive Date: 20131204
  Receipt Date: 20131204
  Transmission Date: 20140711
  Serious: Yes (Other)
  Sender: FDA-Public Use
  Company Number: US-SA-2013SA125369

PATIENT
  Age: 75 Year
  Sex: Female

DRUGS (3)
  1. LANTUS [Suspect]
     Indication: TYPE 1 DIABETES MELLITUS
     Dosage: FROM: 2001. DOSE:7 UNIT(S)
     Route: 051
     Dates: start: 2001
  2. LANTUS SOLOSTAR [Suspect]
     Route: 051
  3. SOLOSTAR [Concomitant]

REACTIONS (4)
  - Blindness [Unknown]
  - Hypoglycaemia [Unknown]
  - Blood glucose decreased [Unknown]
  - Expired drug administered [Unknown]
